FAERS Safety Report 12152966 (Version 1)
Quarter: 2016Q1

REPORT INFORMATION
  Report Type: Spontaneous
  Country: US (occurrence: US)
  Receive Date: 20160305
  Receipt Date: 20160305
  Transmission Date: 20160526
  Serious: No
  Sender: FDA-Public Use
  Company Number: US-SUN PHARMACEUTICAL INDUSTRIES LTD-2014SUN02921

PATIENT

DRUGS (3)
  1. METOPROLOL TARTRATE 25MG TABLET [Suspect]
     Active Substance: METOPROLOL TARTRATE
     Dosage: 0.5 DF (HALF TABLET)
     Route: 048
  2. LEVOTHYROXINE. [Concomitant]
     Active Substance: LEVOTHYROXINE
     Dosage: 1 DF, UNK
  3. METOPROLOL TARTRATE 25MG TABLET [Suspect]
     Active Substance: METOPROLOL TARTRATE
     Indication: PROPHYLAXIS
     Dosage: 1 DF, DAILY
     Route: 048

REACTIONS (7)
  - Feeling hot [Recovered/Resolved]
  - Hyperhidrosis [Recovered/Resolved]
  - Abdominal pain upper [Recovered/Resolved]
  - Blood pressure increased [Recovered/Resolved]
  - Flatulence [Recovered/Resolved]
  - Headache [Recovered/Resolved]
  - Pain in extremity [Recovered/Resolved]
